FAERS Safety Report 14333561 (Version 3)
Quarter: 2018Q1

REPORT INFORMATION
  Report Type: Spontaneous
  Country: GB (occurrence: GB)
  Receive Date: 20171228
  Receipt Date: 20180117
  Transmission Date: 20180509
  Serious: Yes (Disabling, Other)
  Sender: FDA-Public Use
  Company Number: GB-PFIZER INC-2017543783

PATIENT
  Age: 53 Year
  Sex: Male
  Weight: 76.2 kg

DRUGS (13)
  1. PREGABALIN. [Suspect]
     Active Substance: PREGABALIN
     Indication: RESTLESS LEGS SYNDROME
     Dosage: 25 MG, UNK
     Route: 048
     Dates: start: 20130315
  2. OXYNORM [Concomitant]
     Active Substance: OXYCODONE HYDROCHLORIDE
     Dosage: UNK
  3. CLONAZEPAM. [Concomitant]
     Active Substance: CLONAZEPAM
     Dosage: UNK
  4. VOLTAROL [Concomitant]
     Active Substance: DICLOFENAC SODIUM
     Dosage: UNK
     Route: 050
  5. LIPITOR [Concomitant]
     Active Substance: ATORVASTATIN CALCIUM
     Dosage: UNK
  6. COSMOCOL [Concomitant]
     Dosage: 1-3 DAILY
  7. FLURBIPROFEN. [Concomitant]
     Active Substance: FLURBIPROFEN
     Dosage: UNK
  8. TRAMADOL. [Concomitant]
     Active Substance: TRAMADOL
     Dosage: 100 MG, UNK
     Dates: start: 201703
  9. SENOKOT [Concomitant]
     Active Substance: SENNOSIDES
     Dosage: UNK
  10. OXYCONTIN [Interacting]
     Active Substance: OXYCODONE HYDROCHLORIDE
     Dosage: UNK
  11. PREGABALIN. [Interacting]
     Active Substance: PREGABALIN
     Dosage: 400 MG, 1X/DAY
     Route: 048
     Dates: end: 20171107
  12. CALCIUM CARBONATE W/COLECALCIFEROL [Concomitant]
     Active Substance: CALCIUM CARBONATE\CHOLECALCIFEROL
     Dosage: 88IU/2.5G
  13. SYSTANE EYEDROPS [Concomitant]
     Active Substance: POLYETHYLENE GLYCOL 400\PROPYLENE GLYCOL
     Dosage: UNK
     Route: 050

REACTIONS (12)
  - Hypersomnia [Recovering/Resolving]
  - Constipation [Recovering/Resolving]
  - Somnolence [Recovered/Resolved]
  - Dry eye [Recovered/Resolved with Sequelae]
  - Neuralgia [Unknown]
  - Dysuria [Recovering/Resolving]
  - Pain in extremity [Unknown]
  - Labelled drug-drug interaction medication error [Unknown]
  - Fatigue [Recovered/Resolved]
  - Back pain [Recovering/Resolving]
  - Dry mouth [Recovering/Resolving]
  - Binocular eye movement disorder [Recovering/Resolving]

NARRATIVE: CASE EVENT DATE: 20130415
